FAERS Safety Report 19516307 (Version 3)
Quarter: 2021Q3

REPORT INFORMATION
  Report Type: Report from Study
  Country: NG (occurrence: NG)
  Receive Date: 20210710
  Receipt Date: 20210823
  Transmission Date: 20211014
  Serious: Yes (Hospitalization, Other)
  Sender: FDA-Public Use
  Company Number: NVSC2021NG150664

PATIENT
  Age: 61 Year
  Sex: Male

DRUGS (1)
  1. UPERIO [Suspect]
     Active Substance: SACUBITRIL\VALSARTAN
     Indication: CARDIAC FAILURE
     Dosage: 50 MG, BID
     Route: 048
     Dates: start: 202105

REACTIONS (5)
  - Fatigue [Recovering/Resolving]
  - Pollakiuria [Recovering/Resolving]
  - Hunger [Recovering/Resolving]
  - Hypertension [Recovering/Resolving]
  - Blood glucose increased [Recovering/Resolving]

NARRATIVE: CASE EVENT DATE: 202106
